FAERS Safety Report 21516439 (Version 12)
Quarter: 2025Q1

REPORT INFORMATION
  Report Type: Report from Study
  Country: MX (occurrence: MX)
  Receive Date: 20221027
  Receipt Date: 20250305
  Transmission Date: 20250409
  Serious: Yes (Hospitalization, Other)
  Sender: TAKEDA
  Company Number: MX-TAKEDA-2022TUS079275

PATIENT
  Age: 45 Year
  Sex: Male
  Weight: 83 kg

DRUGS (12)
  1. PONATINIB [Suspect]
     Active Substance: PONATINIB
     Indication: Chronic myeloid leukaemia
  2. PONATINIB [Suspect]
     Active Substance: PONATINIB
     Dates: start: 20220427, end: 20230630
  3. PONATINIB [Suspect]
     Active Substance: PONATINIB
  4. PONATINIB [Suspect]
     Active Substance: PONATINIB
     Dosage: UNK, QD
     Dates: start: 20230704, end: 20240110
  5. PONATINIB [Suspect]
     Active Substance: PONATINIB
     Dosage: 22.5 MILLIGRAM, QD
     Dates: start: 20240705
  6. PONATINIB [Suspect]
     Active Substance: PONATINIB
     Dosage: 45 MILLIGRAM, QD
     Dates: start: 20240812, end: 20240907
  7. PONATINIB [Suspect]
     Active Substance: PONATINIB
     Dosage: UNK, QD
     Dates: start: 20240920
  8. PONATINIB [Suspect]
     Active Substance: PONATINIB
     Dosage: 22.5 MILLIGRAM, QD
     Dates: start: 20240927
  9. PONATINIB [Suspect]
     Active Substance: PONATINIB
     Dosage: UNK, QD
  10. IMATINIB [Suspect]
     Active Substance: IMATINIB
     Indication: Chronic myeloid leukaemia
  11. Acarbose zentiva [Concomitant]
  12. METFORMIN HYDROCHLORIDE [Concomitant]
     Active Substance: METFORMIN HYDROCHLORIDE

REACTIONS (12)
  - Pancreatic disorder [Unknown]
  - Abdominal pain upper [Recovering/Resolving]
  - Pancreatitis [Recovering/Resolving]
  - Product supply issue [Unknown]
  - Incorrect dose administered [Unknown]
  - Wrong technique in product usage process [Unknown]
  - Dry skin [Recovering/Resolving]
  - Headache [Recovered/Resolved]
  - Blood pressure increased [Not Recovered/Not Resolved]
  - Chest pain [Recovering/Resolving]
  - Dizziness [Not Recovered/Not Resolved]
  - Pain [Unknown]

NARRATIVE: CASE EVENT DATE: 20220501
